FAERS Safety Report 9758433 (Version 1)
Quarter: 2013Q4

REPORT INFORMATION
  Report Type: Spontaneous
  Country: US (occurrence: US)
  Receive Date: 20131216
  Receipt Date: 20131216
  Transmission Date: 20140711
  Serious: Yes (Other)
  Sender: FDA-Public Use
  Company Number: CHPA2013US018354

PATIENT
  Age: 52 Year
  Sex: Female

DRUGS (1)
  1. PRIVATE LABEL [Suspect]
     Indication: SMOKING CESSATION THERAPY
     Dosage: 42 MG, QD
     Route: 062

REACTIONS (4)
  - Gastrointestinal disorder [Recovered/Resolved]
  - Faecal vomiting [Recovered/Resolved]
  - Overdose [Unknown]
  - Treatment noncompliance [Unknown]
